FAERS Safety Report 9669473 (Version 2)
Quarter: 2013Q4

REPORT INFORMATION
  Report Type: Spontaneous
  Country: US (occurrence: US)
  Receive Date: 20131105
  Receipt Date: 20131122
  Transmission Date: 20140711
  Serious: Yes (Hospitalization)
  Sender: FDA-Public Use
  Company Number: US-B.I. PHARMACEUTICALS,INC./RIDGEFIELD-2013-BI-34988BP

PATIENT
  Age: 67 Year
  Sex: Male
  Weight: 83 kg

DRUGS (14)
  1. PRADAXA [Suspect]
     Indication: ATRIAL FIBRILLATION
     Dosage: 300 MG
     Route: 048
     Dates: start: 201306, end: 201306
  2. ASA [Concomitant]
  3. CLONIDINE [Concomitant]
  4. ALBUTEROL [Concomitant]
  5. FLONASE [Concomitant]
  6. LASIX [Concomitant]
  7. GLIMEPIRIDE [Concomitant]
  8. LANTUS [Concomitant]
  9. NOVOLOG [Concomitant]
  10. PROAIR [Concomitant]
  11. TERAZOSIN [Concomitant]
  12. IRON [Concomitant]
  13. CARVEDILOL [Concomitant]
  14. CRESTOR [Concomitant]

REACTIONS (1)
  - Gastrointestinal haemorrhage [Recovered/Resolved]
